FAERS Safety Report 7310228-9 (Version None)
Quarter: 2011Q1

REPORT INFORMATION
  Report Type: 
  Country: None (occurrence: None)
  Receive Date: 20110224
  Receipt Date: 20110214
  Transmission Date: 20110831
  Serious: Yes (Other)
  Sender: FDA-Public Use
  Company Number: GB-BAXTER-2011BH003703

PATIENT
  Sex: Female

DRUGS (1)
  1. TISSEEL VH KIT [Suspect]
     Indication: HAEMOSTASIS
     Route: 065
     Dates: start: 20110209, end: 20110209

REACTIONS (2)
  - DRUG INEFFECTIVE [None]
  - HAEMORRHAGE [None]
